FAERS Safety Report 6399789-4 (Version None)
Quarter: 2009Q4

REPORT INFORMATION
  Report Type: 
  Country: None (occurrence: None)
  Receive Date: 20091014
  Receipt Date: 20091005
  Transmission Date: 20100525
  Serious: Yes (Hospitalization, Other)
  Sender: FDA-Public Use
  Company Number: GB-ASTRAZENECA-2009SE06357

PATIENT
  Age: 25025 Day
  Sex: Female

DRUGS (11)
  1. PROPOFOL [Suspect]
     Route: 065
     Dates: start: 20090721
  2. MIDAZOLAM HCL [Suspect]
     Route: 065
     Dates: start: 20090721
  3. FENTANYL [Suspect]
     Route: 065
     Dates: start: 20090721
  4. AZD4877 [Suspect]
     Indication: TRANSITIONAL CELL CARCINOMA
     Dosage: ONCE A WEEK FOR 2 WEEKS OUT OF A 4 WEEK CYCLE
     Route: 042
     Dates: start: 20090128, end: 20090520
  5. AZD4877 [Suspect]
     Dosage: ONCE A WEEK FOR 2 WEEKS OUT OF A 4 WEEK CYCLE
     Route: 042
     Dates: start: 20090527
  6. PIRITON [Concomitant]
     Indication: PRURITUS
     Route: 048
  7. NEUROFEN [Concomitant]
     Indication: PAIN
     Route: 048
  8. TRIMETHOPRIN [Concomitant]
     Indication: INFECTION PROPHYLAXIS
     Route: 048
     Dates: start: 20090101
  9. OMEPRAZOLE [Concomitant]
     Indication: DYSPEPSIA
     Route: 048
     Dates: start: 20090707
  10. ONDANSETRON [Concomitant]
     Indication: ANTIBIOTIC PROPHYLAXIS
     Route: 042
     Dates: start: 20090721, end: 20090721
  11. GENTAMICIN [Concomitant]
     Indication: ANTIBIOTIC PROPHYLAXIS
     Route: 042
     Dates: start: 20090721, end: 20090721

REACTIONS (1)
  - PULMONARY EMBOLISM [None]
